FAERS Safety Report 7453624-1 (Version None)
Quarter: 2011Q2

REPORT INFORMATION
  Report Type: 
  Country: None (occurrence: None)
  Receive Date: 20110502
  Receipt Date: 20110427
  Transmission Date: 20111010
  Serious: Yes (Hospitalization)
  Sender: FDA-Public Use
  Company Number: GB-BAXTER-2011BH013307

PATIENT
  Sex: Female

DRUGS (3)
  1. TEICOPLANIN [Suspect]
     Indication: SKIN ULCER
     Route: 065
  2. VANCOMYCIN [Suspect]
     Indication: PRODUCT USED FOR UNKNOWN INDICATION
     Route: 065
  3. METRONIDAZOLE IN PLASTIC CONTAINER [Suspect]
     Indication: SKIN ULCER
     Route: 065

REACTIONS (2)
  - SEPTIC SHOCK [None]
  - DRUG INEFFECTIVE [None]
